FAERS Safety Report 21356535 (Version 1)
Quarter: 2022Q3

REPORT INFORMATION
  Report Type: Spontaneous
  Country: NL (occurrence: NL)
  Receive Date: 20220920
  Receipt Date: 20220920
  Transmission Date: 20221026
  Serious: Yes (Hospitalization, Other)
  Sender: FDA-Public Use
  Company Number: NL-JUBILANT CADISTA PHARMACEUTICALS-2022JUB00281

PATIENT
  Age: 63 Year
  Sex: Female

DRUGS (3)
  1. METHYLPREDNISOLONE [Suspect]
     Active Substance: METHYLPREDNISOLONE
     Dosage: 5 MG, 1X/DAY
     Route: 065
     Dates: start: 2004
  2. CYCLOSPORINE [Suspect]
     Active Substance: CYCLOSPORINE
     Indication: Immunosuppressant drug therapy
     Dosage: 50 MG EVERY 12 HOURS
     Route: 065
     Dates: start: 2004
  3. MIZORIBINE [Suspect]
     Active Substance: MIZORIBINE
     Indication: Immunosuppressant drug therapy
     Dosage: 150 MG, 1X/DAY
     Route: 065
     Dates: start: 2004

REACTIONS (1)
  - Paraganglion neoplasm [Recovered/Resolved]

NARRATIVE: CASE EVENT DATE: 20021001
